FAERS Safety Report 7038379-7 (Version None)
Quarter: 2010Q4

REPORT INFORMATION
  Report Type: 
  Country: None (occurrence: None)
  Receive Date: 20101011
  Receipt Date: 20091118
  Transmission Date: 20110411
  Serious: No
  Sender: FDA-Public Use
  Company Number: US-PFIZER INC-2009261851

PATIENT
  Sex: Female

DRUGS (1)
  1. NEURONTIN [Suspect]
     Indication: NEURALGIA
     Dosage: 100 MG, 4X/DAY
     Dates: start: 20090101, end: 20090801

REACTIONS (2)
  - ABDOMINAL PAIN UPPER [None]
  - CONSTIPATION [None]
